FAERS Safety Report 12472290 (Version 2)
Quarter: 2016Q2

REPORT INFORMATION
  Report Type: Report from Study
  Country: US (occurrence: US)
  Receive Date: 20160616
  Receipt Date: 20160627
  Transmission Date: 20160815
  Serious: Yes (Other)
  Sender: FDA-Public Use
  Company Number: US-GILEAD-2016-0219130

PATIENT
  Age: 55 Year
  Sex: Female

DRUGS (26)
  1. VENTOLIN HFA [Concomitant]
     Active Substance: ALBUTEROL SULFATE
  2. PLAQUENIL                          /00072602/ [Concomitant]
     Active Substance: HYDROXYCHLOROQUINE DIPHOSPHATE
  3. AMBRISENTAN [Suspect]
     Active Substance: AMBRISENTAN
     Indication: PULMONARY HYPERTENSION
     Dosage: 10 MG, QD
     Route: 065
     Dates: start: 20110616
  4. TOVIAZ [Concomitant]
     Active Substance: FESOTERODINE FUMARATE
  5. TIZANIDINE. [Concomitant]
     Active Substance: TIZANIDINE
  6. SAVELLA [Concomitant]
     Active Substance: MILNACIPRAN HYDROCHLORIDE
  7. DDAVP [Concomitant]
     Active Substance: DESMOPRESSIN ACETATE
  8. NASONEX [Concomitant]
     Active Substance: MOMETASONE FUROATE
  9. NEURONTIN [Concomitant]
     Active Substance: GABAPENTIN
  10. PREDNISONE. [Concomitant]
     Active Substance: PREDNISONE
  11. PLAVIX [Concomitant]
     Active Substance: CLOPIDOGREL BISULFATE
  12. CELEXA [Concomitant]
     Active Substance: CITALOPRAM HYDROBROMIDE
  13. TOPAMAX [Concomitant]
     Active Substance: TOPIRAMATE
  14. FLEXERIL [Concomitant]
     Active Substance: CYCLOBENZAPRINE HYDROCHLORIDE
  15. SINGULAIR [Concomitant]
     Active Substance: MONTELUKAST SODIUM
  16. LYRICA [Concomitant]
     Active Substance: PREGABALIN
  17. REGLAN [Concomitant]
     Active Substance: METOCLOPRAMIDE HYDROCHLORIDE
  18. ZANTAC [Concomitant]
     Active Substance: RANITIDINE HYDROCHLORIDE
  19. WELLBUTRIN [Concomitant]
     Active Substance: BUPROPION HYDROCHLORIDE
  20. LEVOTHYROXINE. [Concomitant]
     Active Substance: LEVOTHYROXINE
  21. HYDROXYZINE [Concomitant]
     Active Substance: HYDROXYZINE\HYDROXYZINE HYDROCHLORIDE
  22. CARAFATE [Concomitant]
     Active Substance: SUCRALFATE
  23. BOTOX [Concomitant]
     Active Substance: ONABOTULINUMTOXINA
  24. NEXIUM [Concomitant]
     Active Substance: ESOMEPRAZOLE MAGNESIUM
  25. PLETAL [Concomitant]
     Active Substance: CILOSTAZOL
  26. TIGAN [Concomitant]
     Active Substance: TRIMETHOBENZAMIDE HYDROCHLORIDE

REACTIONS (4)
  - Drug ineffective [Recovered/Resolved]
  - Ileostomy [Unknown]
  - Malabsorption [Unknown]
  - Pulmonary arterial pressure increased [Unknown]

NARRATIVE: CASE EVENT DATE: 20160607
